FAERS Safety Report 22751211 (Version 4)
Quarter: 2023Q4

REPORT INFORMATION
  Report Type: Report from Study
  Country: FR (occurrence: None)
  Receive Date: 20230726
  Receipt Date: 20231002
  Transmission Date: 20240109
  Serious: Yes (Other)
  Sender: FDA-Public Use
  Company Number: FR-Eisai Medical Research-EC-2023-144749

PATIENT
  Age: 86 Year
  Sex: Female
  Weight: 56.2 kg

DRUGS (18)
  1. LECANEMAB [Suspect]
     Active Substance: LECANEMAB
     Indication: Dementia Alzheimer^s type
     Route: 042
     Dates: start: 20200206, end: 20210722
  2. LECANEMAB [Suspect]
     Active Substance: LECANEMAB
     Dosage: OPEN LABEL
     Route: 042
     Dates: start: 20210805, end: 20230216
  3. LECANEMAB [Suspect]
     Active Substance: LECANEMAB
     Route: 042
     Dates: start: 20230427, end: 20230608
  4. FENOFIBRATE [Concomitant]
     Active Substance: FENOFIBRATE
     Indication: Hyperlipidaemia
     Route: 048
     Dates: start: 200012
  5. LORMETAZEPAM [Concomitant]
     Active Substance: LORMETAZEPAM
     Indication: Insomnia
     Route: 048
     Dates: start: 20191108
  6. OMEPRAZOLE [Concomitant]
     Active Substance: OMEPRAZOLE
     Indication: Abdominal discomfort
     Route: 048
     Dates: start: 20200908
  7. ACETAMINOPHEN [Concomitant]
     Active Substance: ACETAMINOPHEN
     Indication: Infusion related reaction
     Route: 048
     Dates: start: 20200220
  8. VITAMIN D [Concomitant]
     Active Substance: VITAMIN D NOS
     Indication: Osteoporosis
     Dosage: 1 BULB
     Route: 048
     Dates: start: 20210418
  9. ACYCLOVIR [Concomitant]
     Active Substance: ACYCLOVIR
     Indication: Herpes zoster
     Dosage: 5 APPLICATIONS
     Route: 062
     Dates: start: 20230506
  10. DOMPERIDONE [Concomitant]
     Active Substance: DOMPERIDONE
     Indication: Abdominal discomfort
     Route: 048
     Dates: start: 20230515
  11. SODIUM BICARBONATE [Concomitant]
     Active Substance: SODIUM BICARBONATE
     Indication: Prophylaxis
     Route: 048
     Dates: start: 20210607
  12. LERCANIDIPINE [Concomitant]
     Active Substance: LERCANIDIPINE
     Indication: Hypertension
     Dates: start: 20210702
  13. FLECAINIDE [Concomitant]
     Active Substance: FLECAINIDE
     Indication: Sinus tachycardia
     Route: 048
     Dates: start: 20210702
  14. VASTEN [Concomitant]
     Indication: Hyperlipidaemia
     Dates: start: 20210702
  15. ARANESP [Concomitant]
     Active Substance: DARBEPOETIN ALFA
     Indication: Anaemia
     Route: 030
     Dates: start: 20220810
  16. LIDOCAINE [Concomitant]
     Active Substance: LIDOCAINE
     Indication: Paraesthesia
     Route: 062
     Dates: start: 20211102
  17. MOVICOL [Concomitant]
     Active Substance: POLYETHYLENE GLYCOL 3350\POTASSIUM CHLORIDE\SODIUM BICARBONATE\SODIUM CHLORIDE
     Indication: Constipation
     Dosage: 1 BAG
     Route: 048
     Dates: start: 1990
  18. CANDESARTAN CILEXETIL\HYDROCHLOROTHIAZIDE [Concomitant]
     Active Substance: CANDESARTAN CILEXETIL\HYDROCHLOROTHIAZIDE
     Indication: Hypertension
     Dosage: 8/12.5 MG
     Route: 048
     Dates: start: 20221108

REACTIONS (1)
  - Renal failure [Not Recovered/Not Resolved]

NARRATIVE: CASE EVENT DATE: 20230713
